FAERS Safety Report 9272771 (Version 1)
Quarter: 2013Q2

REPORT INFORMATION
  Report Type: Spontaneous
  Country: US (occurrence: US)
  Receive Date: 20130506
  Receipt Date: 20130506
  Transmission Date: 20140414
  Serious: No
  Sender: FDA-Public Use
  Company Number: US-ASTRAZENECA-2012SE30028

PATIENT
  Age: 73 Year
  Sex: Female

DRUGS (3)
  1. PRILOSEC OTC [Suspect]
     Route: 048
     Dates: start: 20120308
  2. CHOLESTEROL- AND TRIGLYCERIDE REDUCERS [Concomitant]
     Dosage: UNKNOWN
  3. COZAAR [Concomitant]
     Dosage: UNKNOWN

REACTIONS (4)
  - Oropharyngeal discomfort [Recovered/Resolved]
  - Oropharyngeal pain [Unknown]
  - Eructation [Recovered/Resolved]
  - Incorrect drug administration duration [Not Recovered/Not Resolved]
